FAERS Safety Report 4368548-6 (Version None)
Quarter: 2004Q2

REPORT INFORMATION
  Report Type: 
  Country: None (occurrence: None)
  Receive Date: 20040602
  Receipt Date: 20040518
  Transmission Date: 20050107
  Serious: Yes (Hospitalization)
  Sender: FDA-Public Use
  Company Number: 2004213107US

PATIENT
  Age: 60 Year
  Sex: 0
  Weight: 63.9 kg

DRUGS (9)
  1. CAMPTOSAR [Suspect]
     Indication: OESOPHAGEAL CARCINOMA
     Dosage: 50 MG/M2 , 2 WEEKS CHEMO, 1 OFF , IV
     Route: 042
     Dates: start: 20040303
  2. COMPARATOR-DOCETAXEL (DOCETAXEL) INJECTION [Suspect]
     Indication: OESOPHAGEAL CARCINOMA
     Dosage: 35 MG/M2, 2 WEEKS CHEMO, 1 OFF , IV
     Route: 042
     Dates: start: 20040303
  3. SYNTHROID [Concomitant]
  4. PROTONIX [Concomitant]
  5. ZOFRAN [Concomitant]
  6. PROCHLORPERAZINE [Concomitant]
  7. MEGACE [Concomitant]
  8. MORPHINE [Concomitant]
  9. DECADRON [Concomitant]

REACTIONS (2)
  - CAROTID BRUIT [None]
  - CEREBROVASCULAR ACCIDENT [None]
